FAERS Safety Report 7037040-2 (Version None)
Quarter: 2010Q4

REPORT INFORMATION
  Report Type: 
  Country: None (occurrence: None)
  Receive Date: 20101011
  Receipt Date: 20100929
  Transmission Date: 20110411
  Serious: Yes (Other)
  Sender: FDA-Public Use
  Company Number: JP-SANOFI-AVENTIS-2010SA059956

PATIENT
  Age: 75 Year
  Sex: Male

DRUGS (4)
  1. OXALIPLATIN [Suspect]
     Indication: COLON CANCER
     Route: 042
  2. CALCIUM LEVOFOLINATE [Suspect]
     Indication: COLON CANCER
     Route: 042
  3. FLUOROURACIL [Concomitant]
     Indication: COLON CANCER
     Route: 040
  4. FLUOROURACIL [Concomitant]
     Route: 041

REACTIONS (2)
  - ILEUS [None]
  - SMALL INTESTINE ULCER [None]
